FAERS Safety Report 16551461 (Version 9)
Quarter: 2022Q1

REPORT INFORMATION
  Report Type: Report from Study
  Country: DE (occurrence: DE)
  Receive Date: 20190710
  Receipt Date: 20220314
  Transmission Date: 20220424
  Serious: Yes (Other)
  Sender: FDA-Public Use
  Company Number: DE-SA-2019SA060145

PATIENT
  Age: 49 Year
  Sex: Female
  Weight: 78 kg

DRUGS (5)
  1. ALEMTUZUMAB [Suspect]
     Active Substance: ALEMTUZUMAB
     Indication: Multiple sclerosis
     Dosage: 12 MG
     Route: 041
     Dates: start: 20180514, end: 20180516
  2. ALEMTUZUMAB [Suspect]
     Active Substance: ALEMTUZUMAB
     Dosage: 12 MG
     Route: 041
     Dates: start: 20170508, end: 20170512
  3. EUTHYROX [Concomitant]
     Active Substance: LEVOTHYROXINE SODIUM
     Indication: Autoimmune thyroiditis
     Dosage: 50 MG
     Route: 065
     Dates: start: 20190102
  4. LEVOTHYROXINE SODIUM [Concomitant]
     Active Substance: LEVOTHYROXINE SODIUM
     Indication: Autoimmune thyroiditis
     Dosage: 500 MG IU
     Route: 065
     Dates: start: 20160101, end: 20181019
  5. PANTOPRAZOLE [Concomitant]
     Active Substance: PANTOPRAZOLE
     Indication: Gastritis prophylaxis
     Dosage: 40 MG
     Dates: start: 20200105, end: 20200828

REACTIONS (16)
  - Neutropenia [Not Recovered/Not Resolved]
  - Vitiligo [Not Recovered/Not Resolved]
  - Anaemia [Not Recovered/Not Resolved]
  - Cystitis [Recovered/Resolved]
  - Bone marrow disorder [Not Recovered/Not Resolved]
  - Cystitis noninfective [Recovered/Resolved]
  - Ophthalmic migraine [Recovered/Resolved]
  - Hormone level abnormal [Not Recovered/Not Resolved]
  - Menopausal symptoms [Not Recovered/Not Resolved]
  - Cough [Recovered/Resolved]
  - Nausea [Recovered/Resolved]
  - Dizziness [Recovered/Resolved]
  - Influenza [Recovered/Resolved]
  - Cystitis [Recovered/Resolved]
  - Dyspepsia [Recovered/Resolved]
  - Cystitis [Recovered/Resolved]

NARRATIVE: CASE EVENT DATE: 20181015
